FAERS Safety Report 8516825-7 (Version None)
Quarter: 2012Q3

REPORT INFORMATION
  Report Type: 
  Country: None (occurrence: None)
  Receive Date: 20120706
  Receipt Date: 20120618
  Transmission Date: 20120928
  Serious: Yes (Death)
  Sender: FDA-Public Use
  Company Number: 2012-313

PATIENT
  Age: 51 Year
  Sex: Male

DRUGS (5)
  1. FAZACLO ODT [Suspect]
     Dosage: 200 MG, QD, ORAL
     Route: 048
     Dates: start: 20120104, end: 20120412
  2. NEXIUM [Concomitant]
  3. SYNTHROID [Concomitant]
  4. KLONOPIN [Concomitant]
  5. COGENTIN [Concomitant]

REACTIONS (1)
  - DEATH [None]
